FAERS Safety Report 23746017 (Version 2)
Quarter: 2024Q2

REPORT INFORMATION
  Report Type: Spontaneous
  Country: US (occurrence: US)
  Receive Date: 20240416
  Receipt Date: 20240424
  Transmission Date: 20240716
  Serious: Yes (Other)
  Sender: FDA-Public Use
  Company Number: US-MLMSERVICE-20240328-4916900-1

PATIENT

DRUGS (1)
  1. HYDROXYCHLOROQUINE [Suspect]
     Active Substance: HYDROXYCHLOROQUINE
     Indication: Rheumatoid arthritis
     Dosage: UNK

REACTIONS (6)
  - Cardiomyopathy [Unknown]
  - Syncope [Unknown]
  - Atrioventricular block complete [Unknown]
  - Chest pain [Unknown]
  - Myocardial fibrosis [Unknown]
  - Ventricular remodelling [Unknown]
